FAERS Safety Report 7683885-5 (Version None)
Quarter: 2011Q3

REPORT INFORMATION
  Report Type: 
  Country: None (occurrence: None)
  Receive Date: 20110815
  Receipt Date: 20110805
  Transmission Date: 20111222
  Serious: Yes (Other)
  Sender: FDA-Public Use
  Company Number: US-ASTRAZENECA-2011SE47126

PATIENT
  Age: 60 Year
  Sex: Female
  Weight: 133.8 kg

DRUGS (4)
  1. CARAFATE [Concomitant]
     Indication: GASTRIC ULCER
     Dates: start: 20110601, end: 20110101
  2. NEXIUM [Suspect]
     Indication: GASTRIC ULCER
     Route: 048
     Dates: start: 20110601, end: 20110718
  3. BENICAR [Concomitant]
     Indication: HYPERTENSION
  4. PROTONIX [Suspect]
     Indication: GASTRIC ULCER
     Route: 048
     Dates: start: 20110601, end: 20110601

REACTIONS (3)
  - RECTAL HAEMORRHAGE [None]
  - BLOOD GLUCOSE INCREASED [None]
  - ABDOMINAL PAIN UPPER [None]
